FAERS Safety Report 20578786 (Version 2)
Quarter: 2022Q3

REPORT INFORMATION
  Report Type: Spontaneous
  Country: US (occurrence: US)
  Receive Date: 20220310
  Receipt Date: 20220805
  Transmission Date: 20221026
  Serious: No
  Sender: FDA-Public Use
  Company Number: US-PFIZER INC-202101316439

PATIENT
  Age: 29 Year
  Sex: Male

DRUGS (3)
  1. XELJANZ [Interacting]
     Active Substance: TOFACITINIB CITRATE
     Dosage: 10 MG
     Dates: start: 20210801
  2. TACROLIMUS [Interacting]
     Active Substance: TACROLIMUS
     Dosage: UNK
  3. MYCOPHENOLIC ACID [Interacting]
     Active Substance: MYCOPHENOLIC ACID
     Dosage: UNK

REACTIONS (1)
  - Drug interaction [Unknown]

NARRATIVE: CASE EVENT DATE: 20210101
